FAERS Safety Report 24043289 (Version 2)
Quarter: 2025Q1

REPORT INFORMATION
  Report Type: Report from Study
  Country: US (occurrence: US)
  Receive Date: 20240702
  Receipt Date: 20250306
  Transmission Date: 20250409
  Serious: Yes (Hospitalization, Other)
  Sender: ABBVIE
  Company Number: US-ABBVIE-5817400

PATIENT
  Age: 60 Year
  Sex: Female

DRUGS (2)
  1. HUMIRA [Suspect]
     Active Substance: ADALIMUMAB
     Indication: Product used for unknown indication
     Route: 058
     Dates: start: 20220805
  2. SKYRIZI [Suspect]
     Active Substance: RISANKIZUMAB-RZAA
     Indication: Product used for unknown indication
     Route: 058
     Dates: start: 20220302, end: 202209

REACTIONS (10)
  - Leg amputation [Not Recovered/Not Resolved]
  - Unevaluable event [Unknown]
  - Gait inability [Unknown]
  - Sepsis [Unknown]
  - Illness [Unknown]
  - Alopecia [Unknown]
  - Movement disorder [Not Recovered/Not Resolved]
  - Gastric hypomotility [Not Recovered/Not Resolved]
  - Female reproductive tract disorder [Unknown]
  - Spinal deformity [Unknown]

NARRATIVE: CASE EVENT DATE: 20231201
